FAERS Safety Report 7587273-1 (Version None)
Quarter: 2011Q3

REPORT INFORMATION
  Report Type: 
  Country: None (occurrence: None)
  Receive Date: 20110701
  Receipt Date: 20110624
  Transmission Date: 20111222
  Serious: Yes (Other)
  Sender: FDA-Public Use
  Company Number: US-ELI_LILLY_AND_COMPANY-US201106002704

PATIENT
  Sex: Male
  Weight: 137.87 kg

DRUGS (11)
  1. GLIMEPIRIDE [Concomitant]
     Indication: TYPE 2 DIABETES MELLITUS
     Dosage: UNK
     Dates: end: 20110608
  2. BYETTA [Suspect]
     Indication: TYPE 2 DIABETES MELLITUS
     Dosage: 5 UG, BID
     Route: 058
     Dates: start: 20090601, end: 20090701
  3. METFORMIN HCL [Concomitant]
     Indication: TYPE 2 DIABETES MELLITUS
     Dosage: 1000 MG, BID
     Route: 048
     Dates: start: 20110516
  4. LISINOPRIL [Concomitant]
     Indication: PRODUCT USED FOR UNKNOWN INDICATION
     Dosage: 10 MG, QD
     Route: 048
     Dates: start: 20101103
  5. VITAMIN D [Concomitant]
     Dosage: 50000 DF, WEEKLY (1/W)
     Route: 048
     Dates: start: 20110608
  6. BYETTA [Suspect]
     Dosage: 5 UG, BID
     Route: 058
     Dates: start: 20100810, end: 20110607
  7. CRESTOR [Concomitant]
     Indication: PRODUCT USED FOR UNKNOWN INDICATION
     Dosage: 10 MG, QD
     Route: 048
     Dates: start: 20101103
  8. BYETTA [Suspect]
     Dosage: 10 UG, BID
     Route: 058
     Dates: start: 20090701, end: 20100810
  9. LOVAZA [Concomitant]
     Indication: PRODUCT USED FOR UNKNOWN INDICATION
     Dosage: 1200 MG, QID
     Route: 048
     Dates: start: 20110218
  10. ASPIRIN [Concomitant]
     Indication: PRODUCT USED FOR UNKNOWN INDICATION
     Dosage: 81 MG, QD
     Route: 048
     Dates: start: 20110314
  11. VITAMIN D [Concomitant]
     Indication: PRODUCT USED FOR UNKNOWN INDICATION
     Dosage: 1000 DF, QD
     Route: 048
     Dates: start: 20110314, end: 20110608

REACTIONS (3)
  - PANCREATITIS [None]
  - WEIGHT INCREASED [None]
  - WEIGHT DECREASED [None]
